FAERS Safety Report 16783096 (Version 1)
Quarter: 2019Q3

REPORT INFORMATION
  Report Type: Spontaneous
  Country: RO (occurrence: RO)
  Receive Date: 20190906
  Receipt Date: 20190906
  Transmission Date: 20191005
  Serious: Yes (Hospitalization, Other)
  Sender: FDA-Public Use
  Company Number: RO-AUROBINDO-AUR-APL-2019-058223

PATIENT

DRUGS (4)
  1. MONTELUKAST [Suspect]
     Active Substance: MONTELUKAST SODIUM
     Indication: PRODUCT USED FOR UNKNOWN INDICATION
     Dosage: 10 MILLIGRAM, ONCE A DAY
     Route: 065
  2. XOLAIR [Suspect]
     Active Substance: OMALIZUMAB
     Dosage: 600 MILLIGRAM ONCE A MONTH
     Route: 065
  3. FLUTICASONE PROPIONATE. [Suspect]
     Active Substance: FLUTICASONE PROPIONATE
     Indication: PRODUCT USED FOR UNKNOWN INDICATION
     Dosage: 1000 MICROGRAM, ONCE A DAY, 500 UG, 2X PER DAY, 1 PUFF X 2 / DAY
     Route: 065
  4. XOLAIR [Suspect]
     Active Substance: OMALIZUMAB
     Indication: ASTHMA
     Dosage: 300 MG, EVERY 2 WEEKS
     Route: 065
     Dates: start: 201809

REACTIONS (6)
  - Streptococcal infection [Recovered/Resolved]
  - Pulmonary tuberculosis [Recovered/Resolved]
  - Hypochromic anaemia [Recovered/Resolved]
  - Lymphopenia [Recovered/Resolved]
  - Obstructive airways disorder [Recovered/Resolved]
  - Drug ineffective [Recovered/Resolved]
